FAERS Safety Report 9375200 (Version 1)
Quarter: 2013Q2

REPORT INFORMATION
  Report Type: Spontaneous
  Country: US (occurrence: US)
  Receive Date: 20130628
  Receipt Date: 20130628
  Transmission Date: 20140414
  Serious: No
  Sender: FDA-Public Use
  Company Number: US-JNJFOC-20130613095

PATIENT
  Age: 51 Year
  Sex: Female

DRUGS (12)
  1. INVEGA [Suspect]
     Indication: MAJOR DEPRESSION
     Route: 048
     Dates: start: 201306
  2. PROZAC [Concomitant]
     Route: 065
  3. CYMBALTA [Concomitant]
     Route: 065
  4. LEXAPRO [Concomitant]
     Route: 065
  5. EFFEXOR [Concomitant]
     Route: 065
  6. NEURONTIN [Concomitant]
     Route: 065
  7. PRILOSEC [Concomitant]
     Route: 065
  8. PEPCID [Concomitant]
     Route: 065
  9. FLEXERIL [Concomitant]
     Route: 065
  10. SYNTHROID [Concomitant]
     Route: 065
  11. VICODIN [Concomitant]
     Route: 065
  12. VITAMIN B [Concomitant]
     Route: 065

REACTIONS (1)
  - Rash [Unknown]
